FAERS Safety Report 16999219 (Version 3)
Quarter: 2020Q1

REPORT INFORMATION
  Report Type: Spontaneous
  Country: BR (occurrence: BR)
  Receive Date: 20191106
  Receipt Date: 20200320
  Transmission Date: 20200409
  Serious: Yes (Other)
  Sender: FDA-Public Use
  Company Number: BR-009507513-1911BRA001185

PATIENT
  Sex: Female

DRUGS (1)
  1. IMPLANON NXT [Suspect]
     Active Substance: ETONOGESTREL
     Indication: CONTRACEPTION
     Dosage: 1 IMPLANT IN THE LEFT ARM
     Route: 059
     Dates: start: 20190612

REACTIONS (6)
  - Bile duct stone [Unknown]
  - Maternal exposure during breast feeding [Recovered/Resolved]
  - Hypomenorrhoea [Unknown]
  - Metrorrhagia [Unknown]
  - Blood bilirubin increased [Unknown]
  - Amenorrhoea [Unknown]

NARRATIVE: CASE EVENT DATE: 2019
